FAERS Safety Report 14536556 (Version 7)
Quarter: 2018Q3

REPORT INFORMATION
  Report Type: Report from Study
  Country: IL (occurrence: IL)
  Receive Date: 20180215
  Receipt Date: 20180725
  Transmission Date: 20181010
  Serious: Yes (Hospitalization, Other)
  Sender: FDA-Public Use
  Company Number: IL-SA-2018SA031217

PATIENT
  Age: 46 Year
  Sex: Female

DRUGS (12)
  1. APIDRA [Suspect]
     Active Substance: INSULIN GLULISINE
     Dosage: 20 DF,TID
     Route: 058
     Dates: start: 201801
  2. APIDRA [Suspect]
     Active Substance: INSULIN GLULISINE
     Dosage: 25 DF,TID
     Route: 058
     Dates: start: 2018
  3. APIDRA [Suspect]
     Active Substance: INSULIN GLULISINE
     Dosage: 20 U
     Route: 058
     Dates: start: 20171224
  4. TOUJEO [Suspect]
     Active Substance: INSULIN GLARGINE
     Dosage: 50 DF,UNK
     Route: 051
  5. VICTOZA [Concomitant]
     Active Substance: LIRAGLUTIDE
     Indication: PRODUCT USED FOR UNKNOWN INDICATION
  6. TOUJEO [Suspect]
     Active Substance: INSULIN GLARGINE
     Dosage: UNK UNK,UNK
     Route: 051
     Dates: start: 2017
  7. LIXISENATIDE [Suspect]
     Active Substance: LIXISENATIDE
  8. APIDRA [Suspect]
     Active Substance: INSULIN GLULISINE
     Dosage: 16 DF,TID
     Route: 058
     Dates: start: 20171224
  9. APIDRA [Suspect]
     Active Substance: INSULIN GLULISINE
     Dosage: 14 DF,UNK
     Route: 058
     Dates: start: 201801
  10. TOUJEO [Suspect]
     Active Substance: INSULIN GLARGINE
     Dosage: 60 DF,UNK
     Route: 058
  11. GLUCOPHAGE [Concomitant]
     Active Substance: METFORMIN HYDROCHLORIDE
     Indication: PRODUCT USED FOR UNKNOWN INDICATION
  12. APIDRA [Suspect]
     Active Substance: INSULIN GLULISINE
     Dosage: 18 U
     Route: 058
     Dates: start: 20171224

REACTIONS (24)
  - Cholecystitis [Recovering/Resolving]
  - Headache [Not Recovered/Not Resolved]
  - Vulvovaginal discomfort [Not Recovered/Not Resolved]
  - Fall [Unknown]
  - Diabetic ketoacidosis [Not Recovered/Not Resolved]
  - Pollakiuria [Not Recovered/Not Resolved]
  - Hyperglycaemia [Not Recovered/Not Resolved]
  - Pain [Not Recovered/Not Resolved]
  - Vaginal infection [Recovered/Resolved]
  - Condition aggravated [Recovered/Resolved]
  - Rectal abscess [Recovered/Resolved]
  - Wound [Unknown]
  - Diarrhoea [Not Recovered/Not Resolved]
  - Pyrexia [Not Recovered/Not Resolved]
  - Hepatitis [Not Recovered/Not Resolved]
  - Localised infection [Not Recovered/Not Resolved]
  - Vulvovaginal erythema [Not Recovered/Not Resolved]
  - Burning sensation [Not Recovered/Not Resolved]
  - Purulent discharge [Unknown]
  - Abdominal pain [Not Recovered/Not Resolved]
  - Blood glucose increased [Not Recovered/Not Resolved]
  - Glycosylated haemoglobin increased [Recovering/Resolving]
  - Pelvic fracture [Not Recovered/Not Resolved]
  - Blood glucose increased [Not Recovered/Not Resolved]

NARRATIVE: CASE EVENT DATE: 2018
